FAERS Safety Report 8979986 (Version 2)
Quarter: 2013Q1

REPORT INFORMATION
  Report Type: Report from Study
  Country: AT (occurrence: AT)
  Receive Date: 20121221
  Receipt Date: 20130129
  Transmission Date: 20140127
  Serious: Yes (Hospitalization, Other)
  Sender: FDA-Public Use
  Company Number: PHHY2012AT116536

PATIENT
  Age: 67 Year
  Sex: Male
  Weight: 105 kg

DRUGS (10)
  1. MYFORTIC [Suspect]
     Indication: IMMUNOSUPPRESSION
     Dosage: 720 MG, UNK
     Route: 048
     Dates: start: 20121106
  2. APREDNISLON [Suspect]
     Indication: IMMUNOSUPPRESSION
     Dosage: 10 MG, UNK
     Route: 048
  3. PROGRAF [Suspect]
     Indication: IMMUNOSUPPRESSION
     Dosage: 4 MG, UNK
     Route: 048
  4. PANTOLOC [Concomitant]
     Indication: PROPHYLAXIS AGAINST GASTROINTESTINAL ULCER
     Dosage: 40 MG, UNK
     Route: 048
  5. INSULIN [Concomitant]
     Indication: TYPE 2 DIABETES MELLITUS
     Dosage: ON DEMAND
  6. THROMBO ASS [Concomitant]
     Indication: THROMBOSIS PROPHYLAXIS
     Dosage: 100 MG, UNK
     Route: 048
  7. TAZONAM [Concomitant]
     Indication: INFECTION
     Dosage: 9 G, UNK
     Route: 042
     Dates: start: 20121121, end: 20121122
  8. VALCYTE [Concomitant]
     Indication: CYTOMEGALOVIRUS INFECTION
     Dosage: 450 MG, UNK
     Route: 048
  9. LENDORM [Concomitant]
     Indication: SLEEP DISORDER
     Dosage: UNK UKN, UNK
     Route: 048
     Dates: start: 20121107
  10. ISONIAZIDE [Concomitant]
     Indication: TUBERCULOSIS
     Dosage: 200 MG, UNK
     Route: 048

REACTIONS (5)
  - C-reactive protein increased [Recovered/Resolved]
  - General physical health deterioration [Not Recovered/Not Resolved]
  - Impaired healing [Not Recovered/Not Resolved]
  - Staphylococcal sepsis [Not Recovered/Not Resolved]
  - Wound dehiscence [Unknown]
